FAERS Safety Report 4524077-8 (Version None)
Quarter: 2004Q4

REPORT INFORMATION
  Report Type: 
  Country: None (occurrence: None)
  Receive Date: 20041209
  Receipt Date: 20041124
  Transmission Date: 20050328
  Serious: Yes (Hospitalization, Other)
  Sender: FDA-Public Use
  Company Number: 2004-DE-05980GD

PATIENT
  Age: 73 Year
  Sex: Male

DRUGS (9)
  1. IPRATROPIUM-BROMIDE (IPRATROPIUM BROMIDE) (NR) [Suspect]
     Indication: DYSPNOEA
     Route: 055
  2. MORPHINNE (MORPHINE) (SEE TEXT) (MORPHINE-HCL) [Suspect]
     Indication: PAIN
     Dosage: SEE IMAGE
     Route: 048
  3. ORAMORPH (MORPHINE SULFATE) (NR) (MORPHINE SULPHATE) [Suspect]
     Indication: PAIN
     Dosage: 75 MG  (NR) PO
     Route: 048
  4. FUROSEMIDE (FUROSEMIDE) (NR) (FUROSEMIDE) [Suspect]
     Route: 055
  5. LORAZEPAM (LORAZEPAM) (NR)  (LORAZEPAM) [Suspect]
     Indication: ANXIETY
     Dosage: 500 MCG  (NR);  3 MG (NR, EVERY 4 HOURS)
  6. ALBUTEROL [Suspect]
     Indication: DYSPNOEA
     Dosage: IH
     Route: 055
  7. CHLORPROMAZINE (CHLORPROMAZINE) (NR) [Suspect]
     Dosage: 100 MG (NR, EVERY 6 HOURS)
  8. OXYGEN (OXYGEN) (SEE TEXT) [Suspect]
     Indication: DYSPNOEA
     Dosage: IH
     Route: 055
  9. HALOPERIDOL (HALOPERIDOL) (NR) [Concomitant]

REACTIONS (5)
  - CONDITION AGGRAVATED [None]
  - DRUG INEFFECTIVE [None]
  - DYSPNOEA EXACERBATED [None]
  - RESPIRATORY FAILURE [None]
  - STRIDOR [None]
